FAERS Safety Report 5041222-9 (Version None)
Quarter: 2006Q3

REPORT INFORMATION
  Report Type: 
  Country: None (occurrence: None)
  Receive Date: 20060703
  Receipt Date: 20060615
  Transmission Date: 20061208
  Serious: Yes (Death)
  Sender: FDA-Public Use
  Company Number: FR-GLAXOSMITHKLINE-B0427837A

PATIENT
  Age: 88 Year
  Sex: Female

DRUGS (4)
  1. ARIXTRA [Suspect]
     Indication: DEEP VEIN THROMBOSIS
     Dosage: 7.5MG PER DAY
     Route: 058
     Dates: start: 20060515, end: 20060501
  2. COUMADIN [Suspect]
     Indication: DEEP VEIN THROMBOSIS
     Route: 048
     Dates: start: 20060515, end: 20060101
  3. ASPIRIN [Concomitant]
  4. COMPRESSION STOCKINGS [Concomitant]

REACTIONS (2)
  - CEREBRAL HAEMORRHAGE [None]
  - PROTHROMBIN LEVEL DECREASED [None]
